FAERS Safety Report 8622021 (Version 2)
Quarter: 2013Q4

REPORT INFORMATION
  Report Type: Spontaneous
  Country: US (occurrence: None)
  Receive Date: 20120606
  Receipt Date: 20131217
  Transmission Date: 20140711
  Serious: Yes (Death)
  Sender: FDA-Public Use
  Company Number: UTC-019293

PATIENT
  Age: 54 Year
  Sex: Male
  Weight: 56.8 kg

DRUGS (3)
  1. REMODULIN [Suspect]
     Indication: PULMONARY HYPERTENSION
     Dosage: 63.36 UG/KG (0.044 UG/KG, 1 IN 1 MIN), INTRAVENOUS
     Route: 042
     Dates: start: 20100710
  2. REVATIO [Concomitant]
  3. TRACLEER [Concomitant]

REACTIONS (2)
  - Death [None]
  - Pulmonary arterial hypertension [None]
